FAERS Safety Report 7713919-0 (Version None)
Quarter: 2011Q3

REPORT INFORMATION
  Report Type: 
  Country: None (occurrence: None)
  Receive Date: 20110826
  Receipt Date: 20110818
  Transmission Date: 20111222
  Serious: Yes (Hospitalization)
  Sender: FDA-Public Use
  Company Number: IE-AMGEN-IRLCT2011039174

PATIENT
  Age: 52 Year
  Sex: Female

DRUGS (6)
  1. DOXORUBICIN HCL [Concomitant]
     Dosage: 120 MG, Q3WK
     Route: 042
     Dates: start: 20110701
  2. BLINDED PLACEBO [Suspect]
     Indication: BREAST CANCER
     Dates: start: 20110701
  3. CYCLOPHOSPHAMIDE [Concomitant]
     Dosage: 1200 MG, Q3WK
     Route: 042
     Dates: start: 20110701
  4. BLINDED DENOSUMAB [Suspect]
     Indication: BREAST CANCER
     Dates: start: 20110701
  5. PALONOSETRON [Concomitant]
     Dosage: 0.25 MG, Q3WK
     Route: 042
     Dates: start: 20110701
  6. DEXAMETHASONE [Concomitant]
     Dosage: 16 MG, Q3WK
     Route: 042
     Dates: start: 20110701

REACTIONS (3)
  - BREAST CELLULITIS [None]
  - PYREXIA [None]
  - CELLULITIS STAPHYLOCOCCAL [None]
